FAERS Safety Report 15249274 (Version 1)
Quarter: 2018Q3

REPORT INFORMATION
  Report Type: Spontaneous
  Country: US (occurrence: US)
  Receive Date: 20180807
  Receipt Date: 20180807
  Transmission Date: 20181010
  Serious: No
  Sender: FDA-Public Use
  Company Number: US-PERRIGO-17US027279

PATIENT
  Sex: Female

DRUGS (3)
  1. LORATADINE. [Suspect]
     Active Substance: LORATADINE
     Dosage: 10 MG, TWICE IN 1 HOUR
     Route: 048
     Dates: start: 20171003, end: 20171003
  2. LEVOXYL [Concomitant]
     Active Substance: LEVOTHYROXINE SODIUM
     Indication: PRODUCT USED FOR UNKNOWN INDICATION
     Dosage: UNKNOWN, UNKNOWN
     Route: 065
  3. LORATADINE. [Suspect]
     Active Substance: LORATADINE
     Indication: SINUS DISORDER
     Dosage: 10 MG, QD, PRN
     Route: 048
     Dates: start: 2009

REACTIONS (1)
  - Extra dose administered [Recovered/Resolved]

NARRATIVE: CASE EVENT DATE: 20171003
